FAERS Safety Report 9426697 (Version 1)
Quarter: 2013Q3

REPORT INFORMATION
  Report Type: Report from Study
  Country: CA (occurrence: CA)
  Receive Date: 20130730
  Receipt Date: 20130730
  Transmission Date: 20140515
  Serious: Yes (Hospitalization, Other)
  Sender: FDA-Public Use
  Company Number: CA-JNJFOC-20130411880

PATIENT
  Sex: Female
  Weight: 65 kg

DRUGS (6)
  1. REMICADE [Suspect]
     Indication: RHEUMATOID ARTHRITIS
     Dosage: 52 WEEKS
     Route: 042
     Dates: start: 201001
  2. TYLENOL [Concomitant]
     Dosage: DOSAGE: 500 (UNITS UNSPECIFIED)
     Route: 048
  3. COLACE [Concomitant]
     Dosage: DOSAGE: 100 (UNITS UNSPECIFIED)
     Route: 065
  4. SYNTHROID [Concomitant]
     Dosage: DOSAGE: 50 (UNITS UNSPECIFIED)
     Route: 048
  5. INDOCID [Concomitant]
     Route: 065
  6. DOCUSATE SODIUM [Concomitant]
     Route: 065

REACTIONS (5)
  - Rheumatoid arthritis [Not Recovered/Not Resolved]
  - Rheumatoid nodule [Not Recovered/Not Resolved]
  - Neurodermatitis [Not Recovered/Not Resolved]
  - Wound infection [Recovered/Resolved]
  - Rheumatoid nodule removal [Unknown]
